FAERS Safety Report 14192294 (Version 1)
Quarter: 2017Q4

REPORT INFORMATION
  Report Type: Spontaneous
  Country: US (occurrence: US)
  Receive Date: 20171115
  Receipt Date: 20171115
  Transmission Date: 20180321
  Serious: No
  Sender: FDA-Public Use
  Company Number: US-BRISTOL-MYERS SQUIBB COMPANY-BMS-2017-101710

PATIENT
  Sex: Male

DRUGS (1)
  1. OPDIVO [Suspect]
     Active Substance: NIVOLUMAB
     Indication: MALIGNANT MELANOMA
     Dosage: UNK
     Route: 065
     Dates: start: 201507

REACTIONS (6)
  - Catheter site erythema [Unknown]
  - Skin reaction [Unknown]
  - Pruritus [Unknown]
  - Nerve injury [Unknown]
  - Neck pain [Unknown]
  - Blister [Unknown]
